FAERS Safety Report 11873688 (Version 1)
Quarter: 2015Q4

REPORT INFORMATION
  Report Type: Spontaneous
  Country: US (occurrence: US)
  Receive Date: 20151228
  Receipt Date: 20151228
  Transmission Date: 20160305
  Serious: Yes (Other)
  Sender: FDA-Public Use
  Company Number: US-AMGEN-USASP2015138949

PATIENT
  Age: 20 Year
  Sex: Female
  Weight: 72.56 kg

DRUGS (2)
  1. MARLISSA [Concomitant]
     Active Substance: ETHINYL ESTRADIOL\LEVONORGESTREL
     Dosage: UNK
  2. ENBREL [Suspect]
     Active Substance: ETANERCEPT
     Indication: JUVENILE IDIOPATHIC ARTHRITIS
     Dosage: 50 MG, QWK
     Route: 058
     Dates: start: 2008

REACTIONS (6)
  - Pyrexia [Recovered/Resolved]
  - Kidney infection [Recovered/Resolved]
  - Lip pruritus [Recovering/Resolving]
  - Lip discolouration [Unknown]
  - Lip swelling [Recovering/Resolving]
  - Urinary tract infection [Recovered/Resolved]

NARRATIVE: CASE EVENT DATE: 201505
